FAERS Safety Report 22371274 (Version 1)
Quarter: 2023Q2

REPORT INFORMATION
  Report Type: Spontaneous
  Country: US (occurrence: US)
  Receive Date: 20230526
  Receipt Date: 20230526
  Transmission Date: 20230721
  Serious: Yes (Other)
  Sender: FDA-Public Use
  Company Number: US-BAYER-2023A069067

PATIENT
  Age: 58 Year
  Sex: Female

DRUGS (3)
  1. ALKA-SELTZER PLUS MAXIMUM STRENGTH COUGH, MUCUS AND CONGESTION POWERMA [Suspect]
     Active Substance: ACETAMINOPHEN\DEXTROMETHORPHAN HYDROBROMIDE\GUAIFENESIN\PHENYLEPHRINE HYDROCHLORIDE
     Indication: Hypersensitivity
     Dosage: UNK
     Route: 048
     Dates: start: 20230514, end: 20230514
  2. ALKA-SELTZER PLUS MAXIMUM STRENGTH COUGH, MUCUS AND CONGESTION POWERMA [Suspect]
     Active Substance: ACETAMINOPHEN\DEXTROMETHORPHAN HYDROBROMIDE\GUAIFENESIN\PHENYLEPHRINE HYDROCHLORIDE
     Indication: Nasopharyngitis
  3. TYLENOL [Concomitant]
     Active Substance: ACETAMINOPHEN

REACTIONS (3)
  - Foreign body in throat [Recovered/Resolved]
  - Oropharyngeal pain [Recovered/Resolved]
  - Product use complaint [None]

NARRATIVE: CASE EVENT DATE: 20230514
